FAERS Safety Report 17610740 (Version 2)
Quarter: 2020Q2

REPORT INFORMATION
  Report Type: Report from Study
  Country: US (occurrence: US)
  Receive Date: 20200401
  Receipt Date: 20200512
  Transmission Date: 20200713
  Serious: Yes (Other)
  Sender: FDA-Public Use
  Company Number: US-ROCHE-2571678

PATIENT
  Sex: Female
  Weight: 56.75 kg

DRUGS (6)
  1. TRAZODONE [Concomitant]
     Active Substance: TRAZODONE HYDROCHLORIDE
     Indication: INSOMNIA
     Dosage: ONGOING: YES
     Route: 048
  2. OCREVUS [Suspect]
     Active Substance: OCRELIZUMAB
     Indication: PRIMARY PROGRESSIVE MULTIPLE SCLEROSIS
     Dosage: ONGOING: YES
     Route: 042
     Dates: start: 20181201
  3. TRAZODONE [Concomitant]
     Active Substance: TRAZODONE HYDROCHLORIDE
     Dosage: NO
     Route: 048
     Dates: start: 201811
  4. CLEMASTINE [Concomitant]
     Active Substance: CLEMASTINE
     Dosage: ONGOING: YES
     Route: 048
     Dates: start: 201811
  5. MYRBETRIQ [Concomitant]
     Active Substance: MIRABEGRON
     Dosage: ONGOING: YES
     Route: 048
     Dates: start: 201906
  6. TRAZODONE [Concomitant]
     Active Substance: TRAZODONE HYDROCHLORIDE
     Dosage: NO
     Route: 048

REACTIONS (6)
  - Malaise [Recovered/Resolved]
  - Multiple sclerosis [Recovered/Resolved]
  - Hemiparesis [Not Recovered/Not Resolved]
  - Bladder disorder [Unknown]
  - Urinary tract infection [Recovered/Resolved]
  - Insomnia [Unknown]

NARRATIVE: CASE EVENT DATE: 2019
